FAERS Safety Report 8371141-1 (Version None)
Quarter: 2012Q1

REPORT INFORMATION
  Report Type: 
  Country: None (occurrence: None)
  Receive Date: 20120323
  Receipt Date: 20110125
  Transmission Date: 20120608
  Serious: Yes (Other)
  Sender: FDA-Public Use
  Company Number: 163-21880-11012937

PATIENT
  Age: 78 Year
  Sex: Male

DRUGS (3)
  1. REVLIMID [Suspect]
     Indication: MULTIPLE MYELOMA
     Dosage: 25 MG, DAILY FOR 21 DAYS THEN OFF 7 DAYS, PO
     Route: 048
     Dates: start: 20091103
  2. PROPAFENONE HCL [Concomitant]
  3. DYAZIDE [Concomitant]

REACTIONS (2)
  - DIARRHOEA [None]
  - ATRIAL FIBRILLATION [None]
